FAERS Safety Report 24744176 (Version 1)
Quarter: 2024Q4

REPORT INFORMATION
  Report Type: Spontaneous
  Country: CA (occurrence: CA)
  Receive Date: 20241217
  Receipt Date: 20241217
  Transmission Date: 20250114
  Serious: Yes (Life-Threatening, Hospitalization, Other)
  Sender: PFIZER
  Company Number: CA-PFIZER INC-202400327073

PATIENT
  Age: 2 Year
  Sex: Male

DRUGS (2)
  1. METHOTREXATE SODIUM [Suspect]
     Active Substance: METHOTREXATE SODIUM
     Indication: Lymphatic system neoplasm
     Dosage: 12.5 MG, WEEKLY
     Route: 048
  2. MERCAPTOPURINE [Suspect]
     Active Substance: MERCAPTOPURINE
     Indication: Lymphatic system neoplasm
     Dosage: 45 MG, 1X/DAY
     Route: 048

REACTIONS (1)
  - Febrile neutropenia [Recovered/Resolved]
